FAERS Safety Report 19663029 (Version 1)
Quarter: 2021Q3

REPORT INFORMATION
  Report Type: Report from Study
  Country: BE (occurrence: BE)
  Receive Date: 20210805
  Receipt Date: 20210805
  Transmission Date: 20211014
  Serious: Yes (Other)
  Sender: FDA-Public Use
  Company Number: BE-PFIZER INC-202100967784

PATIENT
  Sex: Female

DRUGS (2)
  1. METHOTREXATE SODIUM. [Suspect]
     Active Substance: METHOTREXATE SODIUM
     Indication: PLACENTA ACCRETA
     Dosage: 50 MG (ON DAYS 1, 3, 5, AND 7, 4 DOSES)
     Route: 042
  2. ELVORINE [Concomitant]
     Active Substance: LEUCOVORIN CALCIUM
     Dosage: 75 MG (ON ALTERNATE DAYS)

REACTIONS (2)
  - Drug ineffective [Recovered/Resolved]
  - Acute respiratory distress syndrome [Recovered/Resolved]
